FAERS Safety Report 6979908-9 (Version None)
Quarter: 2010Q3

REPORT INFORMATION
  Report Type: 
  Country: None (occurrence: None)
  Receive Date: 20100914
  Receipt Date: 20100701
  Transmission Date: 20110219
  Serious: Yes (Death)
  Sender: FDA-Public Use
  Company Number: US-ASTRAZENECA-2010SE30736

PATIENT
  Age: 26 Year
  Sex: Male

DRUGS (7)
  1. SEROQUEL [Suspect]
     Dosage: 200-400 MG
     Route: 048
     Dates: start: 20090103
  2. GABAPENTIN [Concomitant]
     Dates: start: 20090103
  3. LISINOPRIL AND HYDROCHLOROTHIAZIDE [Concomitant]
     Dosage: 10-12.5 MG
     Dates: start: 20090103
  4. ABILIFY [Concomitant]
     Dates: start: 20090103
  5. TRAMADOL HCL [Concomitant]
     Dates: start: 20090117
  6. HYDROCODONE BITARTRATE AND ACETAMINOPHEN [Concomitant]
     Dosage: 5-500
     Dates: start: 20090121
  7. OMEPRAZOLE [Concomitant]
     Dates: start: 20090115

REACTIONS (4)
  - CARDIO-RESPIRATORY ARREST [None]
  - DIABETES MELLITUS [None]
  - DRUG TOXICITY [None]
  - HYPERTENSIVE HEART DISEASE [None]
